FAERS Safety Report 8594425-0 (Version None)
Quarter: 2012Q3

REPORT INFORMATION
  Report Type: 
  Country: None (occurrence: None)
  Receive Date: 20120815
  Receipt Date: 20120807
  Transmission Date: 20120928
  Serious: No
  Sender: FDA-Public Use
  Company Number: US-BIOGENIDEC-2012BI030047

PATIENT
  Sex: Female

DRUGS (1)
  1. AVONEX [Suspect]
     Indication: MULTIPLE SCLEROSIS
     Route: 030
     Dates: start: 20120314

REACTIONS (7)
  - DISTURBANCE IN ATTENTION [None]
  - RHEUMATOID ARTHRITIS [None]
  - MALAISE [None]
  - MEMORY IMPAIRMENT [None]
  - FIBROMYALGIA [None]
  - FEELING ABNORMAL [None]
  - FALL [None]
